FAERS Safety Report 19686774 (Version 1)
Quarter: 2021Q3

REPORT INFORMATION
  Report Type: Spontaneous
  Country: US (occurrence: US)
  Receive Date: 20210811
  Receipt Date: 20210811
  Transmission Date: 20211014
  Serious: No
  Sender: FDA-Public Use
  Company Number: US-MEDEXUS PHARMA, INC.-2020MED00199

PATIENT
  Age: 76 Year
  Sex: Female
  Weight: 51.25 kg

DRUGS (4)
  1. LIOTHYRONINE [Concomitant]
     Active Substance: LIOTHYRONINE
     Dosage: 25 ?G, 1X/DAY
  2. RASUVO [Suspect]
     Active Substance: METHOTREXATE SODIUM
     Indication: RHEUMATOID ARTHRITIS
     Dosage: 7.5 MG, 1X/WEEK ON WEDNESDAYS INJECTED INTO ABDOMEN AREA/STOMACH
     Dates: start: 2018
  3. HYDROCHLOROTHIZIDE [Concomitant]
     Active Substance: HYDROCHLOROTHIAZIDE
     Dosage: 12.5 MG, 1X/DAY
  4. FOLIC ACID. [Concomitant]
     Active Substance: FOLIC ACID
     Dosage: 1 MG, 3X/WEEK

REACTIONS (3)
  - Arthralgia [Recovering/Resolving]
  - Product dose omission issue [Recovered/Resolved]
  - Device failure [Recovered/Resolved]

NARRATIVE: CASE EVENT DATE: 202007
